FAERS Safety Report 17115950 (Version 1)
Quarter: 2019Q4

REPORT INFORMATION
  Report Type: Spontaneous
  Country: US (occurrence: US)
  Receive Date: 20191204
  Receipt Date: 20191204
  Transmission Date: 20200122
  Serious: Yes (Hospitalization)
  Sender: FDA-Public Use
  Company Number: None

PATIENT
  Age: 75 Year
  Sex: Male
  Weight: 73.6 kg

DRUGS (10)
  1. CARVEDILOL 25MG BID [Concomitant]
  2. CETIRIZINE 10MG DAILY [Concomitant]
  3. SPIRONOLACTONE 25MG DAILY [Concomitant]
  4. RIVAROXABAN [Suspect]
     Active Substance: RIVAROXABAN
     Indication: ATRIAL FIBRILLATION
     Route: 048
     Dates: start: 20131202
  5. HYDRALAZINE 50MG BID [Concomitant]
  6. FUROSEMIDE 40MG  QD [Concomitant]
  7. LOSARTAN 12.5MG DAILY [Concomitant]
  8. PREDNISONE 60MG DAILY [Concomitant]
  9. LINAGLIPTIN 5MG DAILY [Concomitant]
  10. TERAZOSIN 5MG DAILY [Concomitant]

REACTIONS (4)
  - Varices oesophageal [None]
  - Haemoglobin decreased [None]
  - Gastritis erosive [None]
  - Gastritis [None]

NARRATIVE: CASE EVENT DATE: 20150110
